FAERS Safety Report 9850966 (Version 2)
Quarter: 2014Q1

REPORT INFORMATION
  Report Type: Report from Study
  Country: DE (occurrence: DE)
  Receive Date: 20140128
  Receipt Date: 20140312
  Transmission Date: 20141002
  Serious: Yes (Death)
  Sender: FDA-Public Use
  Company Number: DE-ABBVIE-14P-062-1195300-00

PATIENT
  Age: 70 Year
  Sex: Male

DRUGS (2)
  1. LEUPRORELIN [Suspect]
     Indication: PROSTATE CANCER
     Dates: start: 20130110, end: 20131010
  2. BETA BLOCKER [Concomitant]
     Indication: PRODUCT USED FOR UNKNOWN INDICATION

REACTIONS (1)
  - General physical health deterioration [Fatal]
